FAERS Safety Report 9422333 (Version 1)
Quarter: 2013Q3

REPORT INFORMATION
  Report Type: Spontaneous
  Country: FR (occurrence: None)
  Receive Date: 20130719
  Receipt Date: 20130719
  Transmission Date: 20140515
  Serious: Yes (Hospitalization)
  Sender: FDA-Public Use
  Company Number: 2013036916

PATIENT
  Age: 10 Year
  Sex: Female

DRUGS (3)
  1. PRIVIGEN [Suspect]
     Indication: HYPOGAMMAGLOBULINAEMIA
     Dosage: INFUSION RATE: 1 ML/KG/H DURING 30 MIN
     Dates: start: 20130325, end: 20130325
  2. POLARAMINE /00043702/ (DEXCHLORPHENITRAMINE MALEATE) [Concomitant]
  3. HYDROCORTISONE (HYDROCORTISONE) [Concomitant]

REACTIONS (4)
  - Headache [None]
  - Abdominal pain [None]
  - Asthenia [None]
  - Hypotension [None]
